FAERS Safety Report 5982130-6 (Version None)
Quarter: 2008Q4

REPORT INFORMATION
  Report Type: 
  Country: None (occurrence: None)
  Receive Date: 20081202
  Receipt Date: 20081117
  Transmission Date: 20090506
  Serious: No
  Sender: FDA-Public Use
  Company Number: PAR_02433_2008

PATIENT
  Age: 66 Year
  Sex: Male

DRUGS (2)
  1. CAPOTEN [Suspect]
     Indication: CARDIAC DISORDER
     Dosage: 25 MG 3X
  2. CAPOTEN [Suspect]
     Indication: HYPERTENSION
     Dosage: 25 MG 3X

REACTIONS (3)
  - BLOOD CREATININE INCREASED [None]
  - RENAL ARTERY OCCLUSION [None]
  - RENAL ARTERY STENOSIS [None]
